FAERS Safety Report 5529241-7 (Version None)
Quarter: 2007Q4

REPORT INFORMATION
  Report Type: 
  Country: None (occurrence: None)
  Receive Date: 20071129
  Receipt Date: 20070824
  Transmission Date: 20080405
  Serious: No
  Sender: FDA-Public Use
  Company Number: A0669771A

PATIENT
  Age: 57 Year
  Sex: Male

DRUGS (13)
  1. WELLBUTRIN SR [Suspect]
     Indication: DEPRESSION
     Dosage: 150MG PER DAY
     Route: 048
     Dates: start: 20070802, end: 20070810
  2. SYNTHROID [Concomitant]
  3. ALTACE [Concomitant]
  4. NEXIUM [Concomitant]
  5. METOPROLOL [Concomitant]
  6. PLAVIX [Concomitant]
  7. LOPERAMIDE HCL [Concomitant]
  8. OMACOR [Concomitant]
  9. LIPITOR [Concomitant]
  10. ZETIA [Concomitant]
  11. AMBIEN [Concomitant]
  12. TRAZODONE HCL [Concomitant]
  13. FAMOTIDINE [Concomitant]

REACTIONS (1)
  - HEART RATE DECREASED [None]
